FAERS Safety Report 15512663 (Version 1)
Quarter: 2018Q4

REPORT INFORMATION
  Report Type: Spontaneous
  Country: US (occurrence: US)
  Receive Date: 20181011
  Receipt Date: 20181011
  Transmission Date: 20190205
  Serious: Yes (Hospitalization)
  Sender: FDA-Public Use
  Company Number: None

PATIENT
  Age: 67 Year
  Sex: Female
  Weight: 98.4 kg

DRUGS (1)
  1. XELODA [Suspect]
     Active Substance: CAPECITABINE
     Dosage: 2000MG BID DAYS 1-14 OF THE CYCLE
     Dates: end: 20180923

REACTIONS (6)
  - Asthenia [None]
  - Lethargy [None]
  - Hypotension [None]
  - Fall [None]
  - Hyperglycaemia [None]
  - Dizziness [None]

NARRATIVE: CASE EVENT DATE: 20180930
